FAERS Safety Report 7604673-1 (Version None)
Quarter: 2011Q3

REPORT INFORMATION
  Report Type: 
  Country: None (occurrence: None)
  Receive Date: 20110712
  Receipt Date: 20110630
  Transmission Date: 20111222
  Serious: Yes (Hospitalization, Other)
  Sender: FDA-Public Use
  Company Number: US-ASTRAZENECA-2011SE35385

PATIENT
  Age: 66 Year
  Sex: Female

DRUGS (31)
  1. CYCLOBENAZPRINE [Concomitant]
     Indication: COMPLEX REGIONAL PAIN SYNDROME
  2. PROVENTIL [Concomitant]
     Indication: CHEST DISCOMFORT
  3. ASPIRIN [Concomitant]
     Indication: BLOOD CHOLESTEROL INCREASED
  4. LYRICA [Concomitant]
     Indication: FIBROMYALGIA
  5. VISINE EYE DROPS [Concomitant]
     Indication: DRY EYE
     Dosage: TWO DROPS EACH EYE, 3 TIMES A DAY
  6. TRAZODONE HCL [Concomitant]
     Indication: INSOMNIA
  7. NAPROXEN [Concomitant]
     Indication: TEMPOROMANDIBULAR JOINT SYNDROME
  8. OXYCODONE HCL [Concomitant]
     Indication: ARTHRITIS
     Dosage: 5/325 MG AS NEEDED
  9. CLARINEX-D [Concomitant]
     Indication: SINUSITIS
     Dosage: 5-240 MG/ ONE TABLET DAILY/AS NEEDED
  10. RHINOCORT [Suspect]
     Indication: SINUS CONGESTION
     Dosage: 32 MCG THREE TIMES A DAY AS NEEDED, TWO SPRAYS EACH NOSTRIL
     Route: 045
  11. CRESTOR [Suspect]
     Indication: HYPERCHOLESTEROLAEMIA
     Route: 048
  12. CYCLOBENAZPRINE [Concomitant]
     Indication: ARTHRITIS
  13. PROCHOLORPERAZINE [Concomitant]
     Indication: NAUSEA
  14. PROVENTIL [Concomitant]
     Indication: COUGH
  15. CENTRUM SILVER [Concomitant]
     Indication: VITAMIN SUPPLEMENTATION
     Dosage: ONE A DAY
  16. ULTRAM [Concomitant]
     Indication: COMPLEX REGIONAL PAIN SYNDROME
     Dosage: 2 PILLS 3-4 TIMES A DAY AS NEEDED
  17. PROVENTIL [Concomitant]
     Indication: ASTHMA
  18. VIACTIV-PLUS D [Concomitant]
     Indication: OSTEOPOROSIS
     Dosage: TWO A DAY
  19. NEXIUM [Suspect]
     Route: 048
  20. PROVENTIL [Concomitant]
  21. TUMS ULTRA STRENGTH [Concomitant]
     Indication: DYSPEPSIA
     Dosage: AS NEEDED
  22. NEXIUM [Suspect]
     Indication: REFLUX LARYNGITIS
     Route: 048
  23. EPIPEN [Concomitant]
     Indication: ALLERGY TO ARTHROPOD STING
  24. LYRICA [Concomitant]
     Indication: HEADACHE
  25. PROVENTIL [Concomitant]
  26. PROVENTIL [Concomitant]
  27. CARISOPRODOL [Concomitant]
     Indication: PAIN
  28. AMOXICILLIN [Concomitant]
     Dosage: ONE HOUR BEFORE DENTAL APPT.
  29. RHINOCORT [Suspect]
     Indication: SINUSITIS
     Dosage: 32 MCG THREE TIMES A DAY AS NEEDED, TWO SPRAYS EACH NOSTRIL
     Route: 045
  30. VICODIN/APAP [Concomitant]
     Indication: FIBROMYALGIA
     Dosage: 5/500 MG AS NEEDED/ ONE A DAY
  31. NAPROXEN [Concomitant]
     Indication: ARTHRITIS

REACTIONS (8)
  - MENISCUS OPERATION [None]
  - OFF LABEL USE [None]
  - KNEE ARTHROPLASTY [None]
  - MENISCUS LESION [None]
  - PAIN [None]
  - HIGH FREQUENCY ABLATION [None]
  - DYSPNOEA [None]
  - GENERAL PHYSICAL HEALTH DETERIORATION [None]
